FAERS Safety Report 5027458-1 (Version None)
Quarter: 2006Q2

REPORT INFORMATION
  Report Type: 
  Country: None (occurrence: None)
  Receive Date: 20060501
  Receipt Date: 20060126
  Transmission Date: 20061013
  Serious: No
  Sender: FDA-Public Use
  Company Number: 200610518BWH

PATIENT
  Age: 60 Year
  Sex: Female
  Weight: 92.9874 kg

DRUGS (13)
  1. NEXAVAR [Suspect]
     Indication: LUNG NEOPLASM MALIGNANT
     Dosage: SEE IMAGE
     Route: 048
     Dates: start: 20060124
  2. NEXAVAR [Suspect]
     Indication: RENAL CELL CARCINOMA STAGE UNSPECIFIED
     Dosage: SEE IMAGE
     Route: 048
     Dates: start: 20060124
  3. CELEBREX [Concomitant]
  4. PROPRAN [Concomitant]
  5. PERCOCET [Concomitant]
  6. CUMMIDAN [Concomitant]
  7. DETROL [Concomitant]
  8. GLUCOMINE-CHONDRITON [Concomitant]
  9. SENEKOT-S [Concomitant]
  10. GLYCOLAX [Concomitant]
  11. HYDROCHLOROTHIAZIDE [Concomitant]
  12. DURAGESIC PAIN PATCH [Concomitant]
  13. METOCLOPRAM [Concomitant]

REACTIONS (10)
  - ALOPECIA [None]
  - BLISTER [None]
  - ERYTHEMA [None]
  - HYPERKERATOSIS [None]
  - LOCALISED INFECTION [None]
  - ORAL DISCOMFORT [None]
  - PALMAR-PLANTAR ERYTHRODYSAESTHESIA SYNDROME [None]
  - SKIN EXFOLIATION [None]
  - SOMNOLENCE [None]
  - THERMAL BURN [None]
